FAERS Safety Report 15867246 (Version 1)
Quarter: 2019Q1

REPORT INFORMATION
  Report Type: Spontaneous
  Country: US (occurrence: US)
  Receive Date: 20190125
  Receipt Date: 20190125
  Transmission Date: 20190417
  Serious: Yes (Life-Threatening, Hospitalization, Other)
  Sender: FDA-Public Use
  Company Number: None

PATIENT
  Age: 68 Year
  Sex: Male
  Weight: 76.5 kg

DRUGS (6)
  1. AMLODIPINE/VALSARTAN 5/320MG [Suspect]
     Active Substance: AMLODIPINE\VALSARTAN
     Indication: HYPERTENSION
     Dosage: ?          QUANTITY:1 TABLET(S);?
     Route: 048
     Dates: start: 20180303, end: 20180630
  2. LOVASTATIN. [Concomitant]
     Active Substance: LOVASTATIN
  3. AMLODIPINE/VALSARTAN 5/320MG [Suspect]
     Active Substance: AMLODIPINE\VALSARTAN
     Indication: HYPERTENSION
     Dosage: ?          QUANTITY:1 TABLET(S);?
     Route: 048
     Dates: start: 20171101, end: 20180302
  4. HYDROCHLOROTHIAZIDE. [Concomitant]
     Active Substance: HYDROCHLOROTHIAZIDE
  5. VITAMIN D [Concomitant]
     Active Substance: CHOLECALCIFEROL
  6. LEVOTHYROXINE. [Concomitant]
     Active Substance: LEVOTHYROXINE

REACTIONS (10)
  - Product substitution issue [None]
  - Throat tightness [None]
  - Dysphonia [None]
  - Recalled product administered [None]
  - Dysphagia [None]
  - Cough [None]
  - Abnormal loss of weight [None]
  - Chest pain [None]
  - Dyspepsia [None]
  - Product use complaint [None]

NARRATIVE: CASE EVENT DATE: 20180714
